FAERS Safety Report 25898152 (Version 2)
Quarter: 2025Q4

REPORT INFORMATION
  Report Type: Spontaneous
  Country: TR (occurrence: TR)
  Receive Date: 20251008
  Receipt Date: 20251023
  Transmission Date: 20260118
  Serious: Yes (Hospitalization)
  Sender: ELI LILLY AND COMPANY
  Company Number: TR-ELI_LILLY_AND_COMPANY-TR202510002373

PATIENT
  Age: 39 Year
  Sex: Female

DRUGS (1)
  1. MOUNJARO [Suspect]
     Active Substance: TIRZEPATIDE
     Indication: Weight control
     Dosage: 2.5 MG, UNKNOWN
     Route: 065

REACTIONS (10)
  - Myocarditis [Unknown]
  - Intentional product misuse [Unknown]
  - Feeding disorder [Unknown]
  - Gastrointestinal disorder [Unknown]
  - Blood gases abnormal [Unknown]
  - Decreased immune responsiveness [Unknown]
  - Ear discomfort [Unknown]
  - Hypoaesthesia [Unknown]
  - Fluid intake reduced [Unknown]
  - Abdominal pain upper [Not Recovered/Not Resolved]
